FAERS Safety Report 13369604 (Version 1)
Quarter: 2017Q1

REPORT INFORMATION
  Report Type: Spontaneous
  Country: US (occurrence: US)
  Receive Date: 20170324
  Receipt Date: 20170324
  Transmission Date: 20170429
  Serious: No
  Sender: FDA-Public Use
  Company Number: US-ROCHE-1497152

PATIENT
  Sex: Female

DRUGS (6)
  1. XOLAIR [Suspect]
     Active Substance: OMALIZUMAB
     Indication: ASTHMA
     Dosage: 150MG SDV
     Route: 058
     Dates: start: 20141029
  2. LISINOPRIL. [Concomitant]
     Active Substance: LISINOPRIL
  3. AMBIEN [Concomitant]
     Active Substance: ZOLPIDEM TARTRATE
  4. VIVELLE-DOT [Concomitant]
     Active Substance: ESTRADIOL
  5. HYDROCHLOROTHIAZID [Concomitant]
     Active Substance: HYDROCHLOROTHIAZIDE
  6. EPINEPHRINE. [Concomitant]
     Active Substance: EPINEPHRINE

REACTIONS (1)
  - Urticaria [Not Recovered/Not Resolved]
